FAERS Safety Report 10408624 (Version 12)
Quarter: 2017Q1

REPORT INFORMATION
  Report Type: Spontaneous
  Country: US (occurrence: US)
  Receive Date: 20140826
  Receipt Date: 20170313
  Transmission Date: 20170428
  Serious: Yes (Life-Threatening, Hospitalization, Other)
  Sender: FDA-Public Use
  Company Number: US-ELI_LILLY_AND_COMPANY-US201204003416

PATIENT
  Age: 41 Year
  Sex: Male
  Weight: 73.74 kg

DRUGS (4)
  1. CYMBALTA [Suspect]
     Active Substance: DULOXETINE HYDROCHLORIDE
     Indication: AFFECTIVE DISORDER
     Dosage: 30 MG, QOD
     Route: 065
     Dates: start: 20120229, end: 20120303
  2. CYMBALTA [Suspect]
     Active Substance: DULOXETINE HYDROCHLORIDE
     Dosage: 15 MG, QD
     Route: 065
     Dates: start: 20120304, end: 20120305
  3. SYNTHROID [Concomitant]
     Active Substance: LEVOTHYROXINE SODIUM
     Indication: HYPOTHYROIDISM
     Dosage: UNK UNK, EACH MORNING
     Route: 048
     Dates: start: 20120123, end: 2012
  4. CYMBALTA [Suspect]
     Active Substance: DULOXETINE HYDROCHLORIDE
     Indication: MUSCULOSKELETAL DISCOMFORT
     Dosage: 30 MG, QD
     Route: 065
     Dates: start: 20120213, end: 20120228

REACTIONS (59)
  - Pruritus generalised [Recovering/Resolving]
  - Acne [Recovering/Resolving]
  - Blood thyroid stimulating hormone abnormal [Unknown]
  - Somnolence [Unknown]
  - Hypoaesthesia [Unknown]
  - Anxiety [Unknown]
  - Eye irritation [Recovering/Resolving]
  - Burning sensation [Recovering/Resolving]
  - Temperature difference of extremities [Recovering/Resolving]
  - Feeling jittery [Recovering/Resolving]
  - Insomnia [Recovering/Resolving]
  - Small fibre neuropathy [Recovering/Resolving]
  - Peripheral swelling [Recovering/Resolving]
  - Dysphoria [Recovering/Resolving]
  - Drug withdrawal syndrome [Recovering/Resolving]
  - Decreased interest [Unknown]
  - Palpitations [Recovering/Resolving]
  - Nightmare [Recovering/Resolving]
  - Paraesthesia [Recovered/Resolved]
  - Anxiety [Recovering/Resolving]
  - Disturbance in attention [Recovering/Resolving]
  - Agitation [Recovering/Resolving]
  - Irritability [Recovering/Resolving]
  - Dysphoria [Unknown]
  - Personality change [Unknown]
  - Eye pain [Recovering/Resolving]
  - Flushing [Recovering/Resolving]
  - Weight decreased [Recovering/Resolving]
  - Xerophthalmia [Recovering/Resolving]
  - Feeling hot [Recovering/Resolving]
  - Hypoaesthesia [Recovering/Resolving]
  - Skin burning sensation [Unknown]
  - Fatigue [Recovered/Resolved]
  - Temperature intolerance [Recovering/Resolving]
  - Erythema [Recovering/Resolving]
  - Eye pruritus [Recovering/Resolving]
  - Hyperhidrosis [Recovering/Resolving]
  - Lethargy [Unknown]
  - Psychotic disorder [Recovering/Resolving]
  - Rash [Recovering/Resolving]
  - Sluggishness [Recovering/Resolving]
  - Papule [Recovering/Resolving]
  - Visual impairment [Recovering/Resolving]
  - Skin irritation [Recovering/Resolving]
  - Nervousness [Recovering/Resolving]
  - Fatigue [Recovering/Resolving]
  - Stress [Recovering/Resolving]
  - Asocial behaviour [Recovering/Resolving]
  - Energy increased [Recovering/Resolving]
  - Affect lability [Recovering/Resolving]
  - Sensory disturbance [Recovering/Resolving]
  - Anger [Recovering/Resolving]
  - Intentional product misuse [Recovered/Resolved]
  - Headache [Recovered/Resolved]
  - Dizziness [Recovering/Resolving]
  - Pain [Recovering/Resolving]
  - Frustration tolerance decreased [Recovering/Resolving]
  - Depression [Recovering/Resolving]
  - Insomnia [Recovering/Resolving]

NARRATIVE: CASE EVENT DATE: 201203
